FAERS Safety Report 26192474 (Version 1)
Quarter: 2025Q4

REPORT INFORMATION
  Report Type: Spontaneous
  Country: US (occurrence: US)
  Receive Date: 20251223
  Receipt Date: 20251223
  Transmission Date: 20260118
  Serious: No
  Sender: SANOFI AVENTIS
  Company Number: US-SA-2025SA380208

PATIENT
  Age: 74 Year
  Sex: Male

DRUGS (1)
  1. DUPIXENT [Suspect]
     Active Substance: DUPILUMAB
     Dosage: UNK

REACTIONS (6)
  - Chromaturia [Unknown]
  - Dizziness [Unknown]
  - Myalgia [Unknown]
  - Headache [Unknown]
  - Skin exfoliation [Unknown]
  - Arthralgia [Unknown]
